FAERS Safety Report 5036738-5 (Version None)
Quarter: 2006Q2

REPORT INFORMATION
  Report Type: 
  Country: None (occurrence: None)
  Receive Date: 20060628
  Receipt Date: 20060616
  Transmission Date: 20061013
  Serious: Yes (Hospitalization)
  Sender: FDA-Public Use
  Company Number: US-JNJFOC-20060604563

PATIENT
  Sex: Male

DRUGS (9)
  1. FENTANYL TRANSDERMAL SYSTEM [Suspect]
     Route: 062
  2. FENTANYL TRANSDERMAL SYSTEM [Suspect]
     Route: 062
  3. FENTANYL TRANSDERMAL SYSTEM [Suspect]
     Route: 062
  4. FENTANYL TRANSDERMAL SYSTEM [Suspect]
     Dosage: 50MCG 2 EVERY 24 HOURS.
     Route: 062
  5. FENTANYL TRANSDERMAL SYSTEM [Suspect]
     Indication: PAIN
     Route: 062
  6. FLOMAX [Concomitant]
     Indication: DRUG USE FOR UNKNOWN INDICATION
     Route: 048
  7. GLYCOLAX [Concomitant]
     Indication: LAXATIVE SUPPORTIVE CARE
     Dosage: TWO 17-G PACKETS
     Route: 065
  8. ASPIRIN [Concomitant]
     Indication: DRUG USE FOR UNKNOWN INDICATION
     Route: 048
  9. MIRALAX [Concomitant]
     Route: 048

REACTIONS (7)
  - FALL [None]
  - FEELING HOT [None]
  - HIP FRACTURE [None]
  - INGUINAL HERNIA [None]
  - RETCHING [None]
  - VOMITING [None]
  - WEIGHT DECREASED [None]
